FAERS Safety Report 22659178 (Version 8)
Quarter: 2023Q4

REPORT INFORMATION
  Report Type: Report from Study
  Country: AU (occurrence: None)
  Receive Date: 20230630
  Receipt Date: 20231004
  Transmission Date: 20240109
  Serious: Yes (Hospitalization)
  Sender: FDA-Public Use
  Company Number: AU-Eisai Medical Research-EC-2023-143378

PATIENT
  Age: 60 Year
  Sex: Male
  Weight: 83.2 kg

DRUGS (10)
  1. LENVATINIB [Suspect]
     Active Substance: LENVATINIB
     Indication: Renal cell carcinoma
     Dosage: STARTED AT 20 MG, FLUCTUATED DOSAGE
     Route: 048
     Dates: start: 20220909, end: 20230621
  2. LENVATINIB [Suspect]
     Active Substance: LENVATINIB
     Route: 048
     Dates: start: 20230713
  3. FAVEZELIMAB [Suspect]
     Active Substance: FAVEZELIMAB
     Indication: Renal cell carcinoma
     Dosage: MK-4280 800 MG (+) PEMBROLIZUMAB 200 MG (MK-4280A)
     Route: 041
     Dates: start: 20220909, end: 20230608
  4. PEMBROLIZUMAB [Suspect]
     Active Substance: PEMBROLIZUMAB
     Dosage: MK-4280 800 MG (+) PEMBROLIZUMAB 200 MG (MK-4280A)
     Route: 041
     Dates: start: 20230720
  5. AMLODIPINE [Concomitant]
     Active Substance: AMLODIPINE BESYLATE
     Dates: start: 20220823
  6. CANDESARTAN [Concomitant]
     Active Substance: CANDESARTAN
     Dates: start: 20220911, end: 20230619
  7. PRAZOSIN [Concomitant]
     Active Substance: PRAZOSIN
     Dates: start: 20221103, end: 20230619
  8. PANTOPRAZOLE [Concomitant]
     Active Substance: PANTOPRAZOLE
     Dates: start: 20221215
  9. HYDROCORTISONE ACETATE [Concomitant]
     Active Substance: HYDROCORTISONE ACETATE
     Dates: start: 20221118
  10. LOPERAMIDE HYDROCHLORIDE [Concomitant]
     Active Substance: LOPERAMIDE HYDROCHLORIDE
     Dates: start: 20230212, end: 20230622

REACTIONS (1)
  - Dehydration [Recovered/Resolved]

NARRATIVE: CASE EVENT DATE: 20230620
